FAERS Safety Report 9405409 (Version 3)
Quarter: 2013Q4

REPORT INFORMATION
  Report Type: Spontaneous
  Country: JP (occurrence: JP)
  Receive Date: 20130717
  Receipt Date: 20131127
  Transmission Date: 20140711
  Serious: Yes (Life-Threatening, Hospitalization)
  Sender: FDA-Public Use
  Company Number: PHHY2013JP002193

PATIENT
  Age: 80 Year
  Sex: Female
  Weight: 38 kg

DRUGS (6)
  1. ZOMETA [Suspect]
     Indication: METASTASES TO BONE
     Dosage: 3 MG, QW4
     Route: 041
     Dates: start: 200702, end: 20130107
  2. ARIMIDEX [Concomitant]
     Dosage: 1 MG, DAILY
     Route: 048
  3. FEMARA [Concomitant]
     Dosage: 2.5 MG, UNK
     Route: 048
  4. JANUVIA [Concomitant]
     Dosage: 50 MG, UNK
     Route: 048
  5. AMLODIN [Concomitant]
     Dosage: 5 MG, UNK
  6. MYSLEE [Concomitant]
     Dosage: 5 MG, UNK

REACTIONS (6)
  - Hypokalaemia [Recovering/Resolving]
  - Muscular weakness [Recovered/Resolved]
  - Metabolic acidosis [Recovered/Resolved]
  - Hypophosphataemia [Recovered/Resolved]
  - Renal tubular acidosis [Recovered/Resolved]
  - Renal impairment [Recovered/Resolved]
